FAERS Safety Report 9532512 (Version 1)
Quarter: 2013Q2

REPORT INFORMATION
  Report Type: Spontaneous
  Country: PL (occurrence: None)
  Receive Date: 20130403
  Receipt Date: 20130403
  Transmission Date: 20140414
  Serious: Yes (Life-Threatening, Other)
  Sender: FDA-Public Use
  Company Number: 012105

PATIENT
  Age: 26 Year
  Sex: 0

DRUGS (3)
  1. BUSULFEX [Suspect]
  2. CYCLOPHOSPHAMIDE (CYCLOPHOSPHAMIDE) [Concomitant]
  3. ANTIBIOTICS [Concomitant]

REACTIONS (1)
  - Stomatitis [None]
